FAERS Safety Report 5719879-6 (Version None)
Quarter: 2008Q2

REPORT INFORMATION
  Report Type: 
  Country: None (occurrence: None)
  Receive Date: 20080425
  Receipt Date: 20080425
  Transmission Date: 20081010
  Serious: No
  Sender: FDA-Public Use
  Company Number: None

PATIENT
  Age: 78 Year
  Sex: Male

DRUGS (2)
  1. LISINOPRIL AND HYDROCHLOROTHIAZIDE [Suspect]
     Dosage: 25/40 MG EVERY DAY PO
     Route: 048
     Dates: start: 20060919, end: 20080112
  2. SULFAMETHOXAZOLE AND TRIMETHOPRIM [Suspect]
     Dosage: 800/160 MG BID PO
     Route: 048
     Dates: start: 20080104, end: 20080112

REACTIONS (2)
  - BLOOD CREATININE INCREASED [None]
  - BLOOD POTASSIUM INCREASED [None]
